FAERS Safety Report 12647771 (Version 1)
Quarter: 2016Q3

REPORT INFORMATION
  Report Type: Spontaneous
  Country: US (occurrence: US)
  Receive Date: 20160812
  Receipt Date: 20160812
  Transmission Date: 20161109
  Serious: Yes (Hospitalization, Other)
  Sender: FDA-Public Use
  Company Number: US-PFIZER INC-2016379659

PATIENT
  Age: 59 Year
  Sex: Male
  Weight: 95 kg

DRUGS (3)
  1. LIPITOR [Concomitant]
     Active Substance: ATORVASTATIN CALCIUM
     Indication: BLOOD CHOLESTEROL INCREASED
     Dosage: 20 MG, UNK
  2. DEPO-TESTOSTERONE [Suspect]
     Active Substance: TESTOSTERONE CYPIONATE
     Dosage: UNK
  3. DEPO-TESTOSTERONE [Suspect]
     Active Substance: TESTOSTERONE CYPIONATE
     Indication: HORMONE LEVEL ABNORMAL
     Dosage: 300 MG, UNK
     Route: 030
     Dates: start: 20160620

REACTIONS (6)
  - Pain in extremity [Unknown]
  - Muscular weakness [Unknown]
  - Back pain [Unknown]
  - Staphylococcal infection [Unknown]
  - Mobility decreased [Not Recovered/Not Resolved]
  - Central nervous system abscess [Unknown]

NARRATIVE: CASE EVENT DATE: 2016
